FAERS Safety Report 22185482 (Version 2)
Quarter: 2023Q2

REPORT INFORMATION
  Report Type: Spontaneous
  Country: US (occurrence: US)
  Receive Date: 20230407
  Receipt Date: 20230426
  Transmission Date: 20230722
  Serious: No
  Sender: FDA-Public Use
  Company Number: US-SANOFI-01562459

PATIENT
  Age: 13 Year
  Sex: Male

DRUGS (1)
  1. DUPIXENT [Suspect]
     Active Substance: DUPILUMAB
     Indication: Eosinophilic oesophagitis
     Dosage: 300 MG
     Route: 058
     Dates: start: 202303

REACTIONS (3)
  - Urticaria [Unknown]
  - Arthralgia [Unknown]
  - Rash [Unknown]

NARRATIVE: CASE EVENT DATE: 20230401
